FAERS Safety Report 16327320 (Version 1)
Quarter: 2019Q2

REPORT INFORMATION
  Report Type: Spontaneous
  Country: US (occurrence: US)
  Receive Date: 20190517
  Receipt Date: 20190517
  Transmission Date: 20190711
  Serious: No
  Sender: FDA-Public Use
  Company Number: US-TEVA-2019-US-1042442

PATIENT
  Age: 28 Year
  Sex: Male

DRUGS (9)
  1. LAMOTRIGINE ZYDUS [Suspect]
     Active Substance: LAMOTRIGINE
     Route: 065
     Dates: start: 20181104
  2. LAMOTRIGINE ZYDUS [Suspect]
     Active Substance: LAMOTRIGINE
     Route: 065
     Dates: start: 20190111
  3. LAMOTRIGINE ZYDUS [Suspect]
     Active Substance: LAMOTRIGINE
     Indication: BIPOLAR DISORDER
     Route: 065
  4. LAMOTRIGINE ZYDUS [Suspect]
     Active Substance: LAMOTRIGINE
     Dosage: 400 MILLIGRAM DAILY; TAKE ONE TABLET BY MOUTH ONCE DAILY IN THE MORNING AND TAKE ONE TABLET BY MOUTH
     Route: 048
     Dates: start: 2018
  5. LAMOTRIGINE. [Suspect]
     Active Substance: LAMOTRIGINE
     Indication: BIPOLAR DISORDER
     Dosage: 400 MILLIGRAM DAILY;
     Route: 048
     Dates: start: 2017
  6. LAMOTRIGINE ZYDUS [Suspect]
     Active Substance: LAMOTRIGINE
     Route: 065
     Dates: start: 20190204
  7. LAMOTRIGINE ZYDUS [Suspect]
     Active Substance: LAMOTRIGINE
     Dosage: 400 MILLIGRAM DAILY; TAKE ONE TABLET BY MOUTH ONCE IN THE MORNING AND TAKE ONE TABLET BY MOUTH ONCE
     Route: 048
     Dates: start: 201811
  8. LAMOTRIGINE ZYDUS [Suspect]
     Active Substance: LAMOTRIGINE
     Route: 065
     Dates: start: 20181207
  9. LAMOTRIGINE ZYDUS [Suspect]
     Active Substance: LAMOTRIGINE
     Route: 065
     Dates: start: 20190203

REACTIONS (8)
  - Pain [Not Recovered/Not Resolved]
  - Therapeutic response shortened [Not Recovered/Not Resolved]
  - Product taste abnormal [Recovered/Resolved]
  - Withdrawal syndrome [Recovered/Resolved]
  - Feeling abnormal [Not Recovered/Not Resolved]
  - Product physical issue [Unknown]
  - Mood swings [Not Recovered/Not Resolved]
  - Drug ineffective [Not Recovered/Not Resolved]

NARRATIVE: CASE EVENT DATE: 2017
